FAERS Safety Report 16567651 (Version 1)
Quarter: 2019Q3

REPORT INFORMATION
  Report Type: Spontaneous
  Country: DE (occurrence: DE)
  Receive Date: 20190712
  Receipt Date: 20190712
  Transmission Date: 20191004
  Serious: Yes (Hospitalization, Other)
  Sender: FDA-Public Use
  Company Number: DE-PFIZER INC-2019297819

PATIENT
  Age: 79 Year
  Sex: Male

DRUGS (9)
  1. METOPROLOL. [Concomitant]
     Active Substance: METOPROLOL
     Dosage: 47.5 MILLIGRAM, BID
     Route: 065
  2. METFORMIN [Concomitant]
     Active Substance: METFORMIN HYDROCHLORIDE
     Dosage: 850 MILLIGRAM, BID
  3. ALNA [Concomitant]
     Active Substance: TAMSULOSIN HYDROCHLORIDE
     Dosage: 0.4 MILLIGRAM, QD
  4. DIGITOXIN [Concomitant]
     Active Substance: DIGITOXIN
     Dosage: 0.07 MILLIGRAM, QD
     Route: 065
  5. AMLODIPINE/VALSARTAN [Concomitant]
     Active Substance: AMLODIPINE\VALSARTAN
     Dosage: 160/5 MILLIGRAM, QD
  6. PANTOPRAZOLE [Suspect]
     Active Substance: PANTOPRAZOLE
     Dosage: 40 MILLIGRAM, BID
     Route: 065
  7. ULCOGANT [Suspect]
     Active Substance: SUCRALFATE
     Dosage: UNK UNK, TID
     Route: 065
  8. NOVONORM [Concomitant]
     Active Substance: REPAGLINIDE
     Dosage: 1 MILLIGRAM, BID
  9. CLEXANE [Concomitant]
     Active Substance: ENOXAPARIN SODIUM
     Dosage: 0.7 MILLILITER, QD

REACTIONS (4)
  - Abdominal pain lower [Unknown]
  - Product prescribing error [Unknown]
  - Acute abdomen [Unknown]
  - Constipation [Unknown]
